FAERS Safety Report 6906632-0 (Version None)
Quarter: 2010Q3

REPORT INFORMATION
  Report Type: 
  Country: None (occurrence: None)
  Receive Date: 20100804
  Receipt Date: 20100723
  Transmission Date: 20110219
  Serious: Yes (Death, Hospitalization)
  Sender: FDA-Public Use
  Company Number: GB-GENENTECH-304749

PATIENT
  Sex: Male

DRUGS (13)
  1. RITUXIMAB [Suspect]
     Indication: DIFFUSE LARGE B-CELL LYMPHOMA
     Dosage: 38 MG, UNK
     Route: 042
     Dates: start: 20100723, end: 20100723
  2. PREDNISOLONE [Suspect]
     Indication: DIFFUSE LARGE B-CELL LYMPHOMA
     Dosage: 100 MG, UNK
     Route: 048
     Dates: start: 20100723, end: 20100723
  3. FOLIC ACID [Concomitant]
     Indication: VITAMIN SUPPLEMENTATION
     Dosage: UNK
     Route: 048
     Dates: end: 20100725
  4. FERROUS SULFATE [Concomitant]
     Indication: VITAMIN SUPPLEMENTATION
     Dosage: 200 MG, TID
     Route: 048
     Dates: end: 20100725
  5. ACETAMINOPHEN [Concomitant]
     Indication: ANALGESIC THERAPY
     Dosage: 500 MG, PRN
     Route: 048
     Dates: end: 20100725
  6. SOTALOL HCL [Concomitant]
     Indication: ARRHYTHMIA
     Dosage: 40 MG, BID
     Route: 048
     Dates: end: 20100723
  7. FUROSEMIDE [Concomitant]
     Indication: DIURETIC THERAPY
     Dosage: UNK
     Route: 048
     Dates: end: 20100723
  8. LACTULOSE [Concomitant]
     Indication: CONSTIPATION
     Dosage: 10 ML, BID
     Route: 048
     Dates: end: 20100725
  9. ALBUTEROL [Concomitant]
     Indication: BRONCHOSPASM
     Dosage: UNK
     Route: 055
     Dates: end: 20100723
  10. TRAVOPROST [Concomitant]
     Indication: PRODUCT USED FOR UNKNOWN INDICATION
     Dosage: 1 GTT, QPM
     Dates: end: 20100723
  11. AZARGA [Concomitant]
     Indication: PRODUCT USED FOR UNKNOWN INDICATION
     Dosage: 1 GTT, BID
     Dates: end: 20100723
  12. AMOXICILLIN [Concomitant]
     Indication: ANTIBIOTIC THERAPY
     Dosage: 500 MG, TID
     Route: 048
     Dates: start: 20100720, end: 20100723
  13. CLEXANE [Concomitant]
     Indication: PRODUCT USED FOR UNKNOWN INDICATION
     Dosage: UNK
     Dates: start: 20100723, end: 20100725

REACTIONS (7)
  - ATRIAL FIBRILLATION [None]
  - HYPOTENSION [None]
  - LOWER RESPIRATORY TRACT INFECTION [None]
  - LUNG ABSCESS [None]
  - LUNG INFECTION [None]
  - OPEN WOUND [None]
  - SEPSIS [None]
